FAERS Safety Report 22304347 (Version 1)
Quarter: 2023Q2

REPORT INFORMATION
  Report Type: Spontaneous
  Country: US (occurrence: None)
  Receive Date: 20230509
  Receipt Date: 20230509
  Transmission Date: 20230721
  Serious: Yes (Hospitalization)
  Sender: FDA-Public Use
  Company Number: None

PATIENT
  Age: 78 Year
  Sex: Female
  Weight: 45.9 kg

DRUGS (2)
  1. FLUOXETINE HYDROCHLORIDE [Suspect]
     Active Substance: FLUOXETINE HYDROCHLORIDE
     Indication: Anxiety
     Dosage: OTHER QUANTITY : 1 CAPSULE(S);?FREQUENCY : DAILY;?
     Route: 048
     Dates: start: 20230314, end: 20230414
  2. AMLODIPINE [Concomitant]
     Active Substance: AMLODIPINE BESYLATE

REACTIONS (10)
  - Nausea [None]
  - Malaise [None]
  - Palpitations [None]
  - Extrasystoles [None]
  - Dehydration [None]
  - Gastroenteritis viral [None]
  - Asthenia [None]
  - Weight decreased [None]
  - Hypophagia [None]
  - Therapy cessation [None]

NARRATIVE: CASE EVENT DATE: 20230330
